FAERS Safety Report 7675279-3 (Version None)
Quarter: 2011Q3

REPORT INFORMATION
  Report Type: 
  Country: None (occurrence: None)
  Receive Date: 20110810
  Receipt Date: 20110805
  Transmission Date: 20111222
  Serious: Yes (Hospitalization)
  Sender: FDA-Public Use
  Company Number: US-VERTEX PHARMACEUTICALS INC.-AE-2011-000747

PATIENT
  Sex: Female

DRUGS (3)
  1. PEGINTERFERON [Concomitant]
     Indication: HEPATITIS C
     Dates: start: 20110630
  2. INCIVEK [Suspect]
     Indication: HEPATITIS C
     Dates: start: 20110630
  3. RIBAVIRIN [Concomitant]
     Indication: HEPATITIS C
     Dates: start: 20110630

REACTIONS (2)
  - ANAEMIA [None]
  - GASTRIC DISORDER [None]
